FAERS Safety Report 11851708 (Version 1)
Quarter: 2015Q4

REPORT INFORMATION
  Report Type: Spontaneous
  Country: FR (occurrence: FR)
  Receive Date: 20151218
  Receipt Date: 20151218
  Transmission Date: 20160305
  Serious: Yes (Death, Hospitalization)
  Sender: FDA-Public Use
  Company Number: FR-PFIZER INC-2015443012

PATIENT
  Age: 52 Year
  Sex: Female

DRUGS (2)
  1. CELLTOP [Suspect]
     Active Substance: ETOPOSIDE
     Indication: BREAST CANCER
     Dosage: 50 MG DAILY DURING 15 DAYS THEN STOP DURING 1 WEEK
     Route: 048
  2. LYRICA [Suspect]
     Active Substance: PREGABALIN
     Indication: NEURALGIA
     Dosage: 75 MG, 2X/DAY
     Route: 048

REACTIONS (6)
  - Cardiac arrest [Fatal]
  - Septic shock [Fatal]
  - Opportunistic infection [Fatal]
  - Vomiting [Not Recovered/Not Resolved]
  - Febrile bone marrow aplasia [Fatal]
  - Respiratory arrest [Fatal]

NARRATIVE: CASE EVENT DATE: 201507
